FAERS Safety Report 14728562 (Version 2)
Quarter: 2018Q2

REPORT INFORMATION
  Report Type: Report from Study
  Country: US (occurrence: US)
  Receive Date: 20180406
  Receipt Date: 20180601
  Transmission Date: 20180711
  Serious: Yes (Other)
  Sender: FDA-Public Use
  Company Number: US-ALEXION PHARMACEUTICALS INC.-A201803694

PATIENT
  Age: 65 Year
  Sex: Female
  Weight: 38.18 kg

DRUGS (1)
  1. STRENSIQ [Suspect]
     Active Substance: ASFOTASE ALFA
     Indication: HYPOPHOSPHATASIA
     Dosage: 74 MG, TIW
     Route: 058

REACTIONS (5)
  - Sinusitis [Recovered/Resolved]
  - Blood cholesterol increased [Unknown]
  - Lower respiratory tract infection [Unknown]
  - Cough [Unknown]
  - Incorrect dose administered [Unknown]

NARRATIVE: CASE EVENT DATE: 20180323
